FAERS Safety Report 12257834 (Version 1)
Quarter: 2016Q2

REPORT INFORMATION
  Report Type: Spontaneous
  Country: FR (occurrence: FR)
  Receive Date: 20160412
  Receipt Date: 20160412
  Transmission Date: 20160815
  Serious: Yes (Hospitalization)
  Sender: FDA-Public Use
  Company Number: FR-ELI_LILLY_AND_COMPANY-FR201603010738

PATIENT
  Age: 67 Year
  Sex: Male

DRUGS (6)
  1. ADENURIC [Concomitant]
     Active Substance: FEBUXOSTAT
     Dosage: UNK, UNKNOWN
     Route: 065
  2. BISOPROLOL [Concomitant]
     Active Substance: BISOPROLOL
     Dosage: UNK, UNKNOWN
     Route: 065
  3. CARBOPLATIN. [Suspect]
     Active Substance: CARBOPLATIN
     Indication: BLADDER CANCER
     Dosage: 490 MG, CYCLICAL
     Route: 042
     Dates: start: 20160114, end: 20160211
  4. ATORVASTATINE                      /01326101/ [Concomitant]
     Active Substance: ATORVASTATIN
     Dosage: UNK, UNKNOWN
     Route: 065
  5. GEMZAR [Suspect]
     Active Substance: GEMCITABINE HYDROCHLORIDE
     Dosage: 1.8 G, CYCLICAL
     Route: 042
     Dates: start: 20160114, end: 20160218
  6. PLAVIX [Concomitant]
     Active Substance: CLOPIDOGREL BISULFATE
     Dosage: UNK, UNKNOWN
     Route: 065

REACTIONS (7)
  - Thrombocytopenia [Recovered/Resolved]
  - Gout [Recovered/Resolved]
  - Neutropenia [Unknown]
  - Anaemia [Recovering/Resolving]
  - Haemorrhoidal haemorrhage [Recovered/Resolved]
  - Arteritis [Unknown]
  - Off label use [Unknown]

NARRATIVE: CASE EVENT DATE: 20160114
